FAERS Safety Report 4956306-0 (Version None)
Quarter: 2006Q1

REPORT INFORMATION
  Report Type: 
  Country: None (occurrence: None)
  Receive Date: 20060323
  Receipt Date: 20060320
  Transmission Date: 20060701
  Serious: Yes (Death)
  Sender: FDA-Public Use
  Company Number: GXKR2006DE01628

PATIENT
  Age: 63 Year
  Sex: Male

DRUGS (1)
  1. DOXYCYCLINE +AMBROXOL (NGX) (AMBROXOL, DOXYCYCLINE) [Suspect]
     Dates: start: 20060101, end: 20060101

REACTIONS (9)
  - ANGIONEUROTIC OEDEMA [None]
  - BRAIN DAMAGE [None]
  - CARDIAC ARREST [None]
  - DEPRESSED LEVEL OF CONSCIOUSNESS [None]
  - GENERAL PHYSICAL HEALTH DETERIORATION [None]
  - HYPERSENSITIVITY [None]
  - OBSTRUCTIVE AIRWAYS DISORDER [None]
  - OEDEMA PERIPHERAL [None]
  - TRACHEAL STENOSIS [None]
